FAERS Safety Report 9238965 (Version 2)
Quarter: 2013Q2

REPORT INFORMATION
  Report Type: Spontaneous
  Country: NL (occurrence: NL)
  Receive Date: 20130418
  Receipt Date: 20130423
  Transmission Date: 20140414
  Serious: Yes (Death, Hospitalization)
  Sender: FDA-Public Use
  Company Number: NL-B.I. PHARMACEUTICALS,INC./RIDGEFIELD-2013-NL-00305NL

PATIENT
  Age: 73 Year
  Sex: Male

DRUGS (8)
  1. PRADAXA [Suspect]
     Dosage: 300 MG
     Dates: start: 20121012
  2. PENIDURAL [Concomitant]
     Dosage: INJECTION
     Route: 030
  3. COLCHICINE [Concomitant]
     Indication: GOUT
     Dosage: 1 MG
     Route: 048
  4. ALLOPURINOL [Concomitant]
     Indication: GOUT
     Dosage: 400 MG
     Route: 048
  5. BUMETANIDE [Concomitant]
     Indication: CARDIAC FAILURE
     Dosage: 2 MG
     Route: 048
  6. RAMIPRIL [Concomitant]
     Indication: HYPERTENSION
     Dosage: 10 MG
     Route: 048
  7. SPECIAL DIET [Concomitant]
     Indication: DIABETES MELLITUS
  8. INHALATION MEDICATION [Concomitant]
     Indication: RESTRICTIVE PULMONARY DISEASE

REACTIONS (1)
  - Cardiac arrest [Fatal]
